FAERS Safety Report 12379289 (Version 2)
Quarter: 2016Q3

REPORT INFORMATION
  Report Type: Spontaneous
  Country: US (occurrence: US)
  Receive Date: 20160517
  Receipt Date: 20160901
  Transmission Date: 20161109
  Serious: No
  Sender: FDA-Public Use
  Company Number: US-RELYPSA-RLY2016000353

PATIENT
  Sex: Male

DRUGS (13)
  1. VITAMIN D2 [Concomitant]
     Active Substance: ERGOCALCIFEROL
  2. CILOSTAZOL. [Concomitant]
     Active Substance: CILOSTAZOL
  3. LANTUS [Concomitant]
     Active Substance: INSULIN GLARGINE
  4. KAYEXALATE [Concomitant]
     Active Substance: SODIUM POLYSTYRENE SULFONATE
  5. METOPROLOL TARTRATE. [Concomitant]
     Active Substance: METOPROLOL TARTRATE
  6. VELTASSA [Suspect]
     Active Substance: PATIROMER
     Indication: HYPERKALAEMIA
     Dosage: 8.4 G, DAILY
     Route: 048
     Dates: start: 20160325
  7. REPAGLINIDE. [Concomitant]
     Active Substance: REPAGLINIDE
  8. MAGNESIUM [Concomitant]
     Active Substance: MAGNESIUM
  9. MULTIVITAMINS, PLAIN [Concomitant]
     Active Substance: VITAMINS
  10. AMLODIPINE BESYLATE. [Concomitant]
     Active Substance: AMLODIPINE BESYLATE
  11. TAMSULOSIN HCL [Concomitant]
     Active Substance: TAMSULOSIN
  12. VITAMIN D3 [Concomitant]
     Active Substance: CHOLECALCIFEROL
  13. SILVADENE [Concomitant]
     Active Substance: SILVER SULFADIAZINE

REACTIONS (1)
  - Diarrhoea [Unknown]
